FAERS Safety Report 19798762 (Version 1)
Quarter: 2021Q3

REPORT INFORMATION
  Report Type: Spontaneous
  Country: IT (occurrence: IT)
  Receive Date: 20210907
  Receipt Date: 20210907
  Transmission Date: 20211014
  Serious: Yes (Hospitalization)
  Sender: FDA-Public Use
  Company Number: IT-BIOGEN-2021BI01045634

PATIENT
  Age: 56 Year
  Sex: Female

DRUGS (3)
  1. MIRTAZAPINA ACTAVIS [Concomitant]
     Active Substance: MIRTAZAPINE
     Indication: DEPRESSION
     Route: 048
  2. TYSABRI [Suspect]
     Active Substance: NATALIZUMAB
     Indication: MULTIPLE SCLEROSIS
     Route: 042
     Dates: start: 20151101, end: 20210616
  3. TRILAFON [Concomitant]
     Active Substance: PERPHENAZINE
     Indication: MAJOR DEPRESSION
     Route: 048

REACTIONS (1)
  - Vulvar adenocarcinoma [Unknown]

NARRATIVE: CASE EVENT DATE: 20210620
